FAERS Safety Report 14906857 (Version 4)
Quarter: 2019Q1

REPORT INFORMATION
  Report Type: Report from Study
  Country: None (occurrence: US)
  Receive Date: 20180517
  Receipt Date: 20190218
  Transmission Date: 20190417
  Serious: Yes (Other)
  Sender: FDA-Public Use
  Company Number: US-ABBVIE-18K-163-2356119-00

PATIENT
  Age: 49 Year
  Sex: Female

DRUGS (6)
  1. NOVOLOG [Concomitant]
     Active Substance: INSULIN ASPART
     Indication: PRODUCT USED FOR UNKNOWN INDICATION
  2. LISINOPRIL. [Concomitant]
     Active Substance: LISINOPRIL
     Indication: PRODUCT USED FOR UNKNOWN INDICATION
  3. HUMIRA [Suspect]
     Active Substance: ADALIMUMAB
     Indication: UVEITIS
     Route: 058
     Dates: start: 201708, end: 201811
  4. FOLIC ACID. [Concomitant]
     Active Substance: FOLIC ACID
     Indication: PRODUCT USED FOR UNKNOWN INDICATION
  5. RANITIDINE. [Concomitant]
     Active Substance: RANITIDINE
     Indication: PRODUCT USED FOR UNKNOWN INDICATION
  6. SYNTHROID [Concomitant]
     Active Substance: LEVOTHYROXINE SODIUM
     Indication: PRODUCT USED FOR UNKNOWN INDICATION

REACTIONS (10)
  - Blindness [Unknown]
  - Diabetes mellitus [Not Recovered/Not Resolved]
  - Eye swelling [Recovering/Resolving]
  - Upper respiratory tract infection [Recovered/Resolved]
  - Liver function test abnormal [Unknown]
  - Injection site haemorrhage [Unknown]
  - Ill-defined disorder [Not Recovered/Not Resolved]
  - Type 1 diabetes mellitus [Unknown]
  - Stress [Unknown]
  - Back pain [Unknown]

NARRATIVE: CASE EVENT DATE: 201711
